FAERS Safety Report 20485703 (Version 1)
Quarter: 2022Q1

REPORT INFORMATION
  Report Type: Spontaneous
  Country: US (occurrence: None)
  Receive Date: 20220217
  Receipt Date: 20220217
  Transmission Date: 20220424
  Serious: No
  Sender: FDA-Public Use
  Company Number: 2022A030525

PATIENT
  Sex: Male
  Weight: 117.9 kg

DRUGS (6)
  1. BUDESONIDE\FORMOTEROL\GLYCOPYRRONIUM [Suspect]
     Active Substance: BUDESONIDE\FORMOTEROL\GLYCOPYRRONIUM
     Indication: Chronic obstructive pulmonary disease
     Dosage: 160/9/4.8 MCGS TWO PUFFS TWICE DAILY
     Route: 055
     Dates: start: 2020
  2. BUDESONIDE\FORMOTEROL\GLYCOPYRRONIUM [Suspect]
     Active Substance: BUDESONIDE\FORMOTEROL\GLYCOPYRRONIUM
     Indication: Asthma
     Dosage: 160/9/4.8 MCGS TWO PUFFS TWICE DAILY
     Route: 055
     Dates: start: 2020
  3. BUDESONIDE\FORMOTEROL\GLYCOPYRRONIUM [Suspect]
     Active Substance: BUDESONIDE\FORMOTEROL\GLYCOPYRRONIUM
     Indication: Sleep apnoea syndrome
     Dosage: 160/9/4.8 MCGS TWO PUFFS TWICE DAILY
     Route: 055
     Dates: start: 2020
  4. SYMBICORT [Suspect]
     Active Substance: BUDESONIDE\FORMOTEROL FUMARATE DIHYDRATE
     Indication: Chronic obstructive pulmonary disease
     Dosage: 160/4.5 MCGS TWO PUFFS TWICE DAILY160UG/INHAL TWO TIMES A DAY
     Route: 055
     Dates: start: 2019
  5. SYMBICORT [Suspect]
     Active Substance: BUDESONIDE\FORMOTEROL FUMARATE DIHYDRATE
     Indication: Asthma
     Dosage: 160/4.5 MCGS TWO PUFFS TWICE DAILY160UG/INHAL TWO TIMES A DAY
     Route: 055
     Dates: start: 2019
  6. SYMBICORT [Suspect]
     Active Substance: BUDESONIDE\FORMOTEROL FUMARATE DIHYDRATE
     Indication: Sleep apnoea syndrome
     Dosage: 160/4.5 MCGS TWO PUFFS TWICE DAILY160UG/INHAL TWO TIMES A DAY
     Route: 055
     Dates: start: 2019

REACTIONS (6)
  - Drug ineffective [Unknown]
  - Product after taste [Unknown]
  - Product dose omission issue [Unknown]
  - Device malfunction [Unknown]
  - Drug delivery system issue [Unknown]
  - Wrong technique in device usage process [Unknown]
